FAERS Safety Report 5329026-0 (Version None)
Quarter: 2007Q2

REPORT INFORMATION
  Report Type: 
  Country: None (occurrence: None)
  Receive Date: 20070518
  Receipt Date: 20070507
  Transmission Date: 20071010
  Serious: Yes (Hospitalization, Other)
  Sender: FDA-Public Use
  Company Number: US-PFIZER INC-2006041219

PATIENT
  Sex: Male

DRUGS (7)
  1. NEURONTIN [Suspect]
     Indication: ANXIETY
  2. CLONAZEPAM [Concomitant]
  3. REMERON [Concomitant]
     Indication: DEPRESSION
  4. SEROQUEL [Concomitant]
  5. PROTONIX [Concomitant]
     Dosage: DAILY DOSE:40MG
  6. THIAMINE [Concomitant]
  7. FOLATE [Concomitant]

REACTIONS (4)
  - DRUG INEFFECTIVE [None]
  - INTENTIONAL SELF-INJURY [None]
  - SELF MUTILATION [None]
  - SUICIDE ATTEMPT [None]
